FAERS Safety Report 7826332-2 (Version None)
Quarter: 2011Q4

REPORT INFORMATION
  Report Type: 
  Country: None (occurrence: None)
  Receive Date: 20111020
  Receipt Date: 20111012
  Transmission Date: 20120403
  Serious: No
  Sender: FDA-Public Use
  Company Number: US-BIOGENIDEC-2011BI039059

PATIENT
  Age: 50 Year
  Sex: Female

DRUGS (1)
  1. TYSABRI [Suspect]
     Indication: MULTIPLE SCLEROSIS
     Route: 042
     Dates: start: 20110920

REACTIONS (7)
  - PAIN [None]
  - HYPOAESTHESIA [None]
  - DIZZINESS [None]
  - HEAD DISCOMFORT [None]
  - FATIGUE [None]
  - NAUSEA [None]
  - HEADACHE [None]
